FAERS Safety Report 18409452 (Version 1)
Quarter: 2020Q4

REPORT INFORMATION
  Report Type: Spontaneous
  Country: US (occurrence: US)
  Receive Date: 20201021
  Receipt Date: 20201021
  Transmission Date: 20210114
  Serious: Yes (Life-Threatening, Hospitalization)
  Sender: FDA-Public Use
  Company Number: US-INVENTIA-000424

PATIENT
  Age: 43 Year
  Sex: Female

DRUGS (7)
  1. IRON [Concomitant]
     Active Substance: IRON
  2. GABAPENTIN. [Concomitant]
     Active Substance: GABAPENTIN
  3. METFORMIN [Suspect]
     Active Substance: METFORMIN HYDROCHLORIDE
     Indication: TYPE 2 DIABETES MELLITUS
     Dosage: INCREASED FROM 500 MG TWICE DAILY TO?2000 TWICE DAILY 4-5 MONTHS BEFORE ADMISSION
  4. IBUPROFEN. [Concomitant]
     Active Substance: IBUPROFEN
     Indication: PAIN
  5. HYDROCHLOROTHIAZIDE. [Concomitant]
     Active Substance: HYDROCHLOROTHIAZIDE
  6. LISINOPRIL. [Concomitant]
     Active Substance: LISINOPRIL
  7. OMEPRAZOLE. [Concomitant]
     Active Substance: OMEPRAZOLE

REACTIONS (1)
  - Metabolic acidosis [Recovered/Resolved]
